FAERS Safety Report 4907108-2 (Version None)
Quarter: 2006Q1

REPORT INFORMATION
  Report Type: 
  Country: None (occurrence: None)
  Receive Date: 20060206
  Receipt Date: 20060127
  Transmission Date: 20060701
  Serious: Yes (Hospitalization)
  Sender: FDA-Public Use
  Company Number: 2006013189

PATIENT
  Age: 76 Year
  Sex: Female

DRUGS (16)
  1. XANAX [Suspect]
     Indication: ILL-DEFINED DISORDER
     Dosage: 1.5 MG (0.5 MG, 3 IN 1 D), ORAL
     Route: 048
  2. MOSCONTIN (MORPHINE SULFATE) [Suspect]
     Indication: FOOT DEFORMITY
     Dosage: 120 MG (2 IN 1 D), ORAL
     Route: 048
  3. NOCTRAN 10 (ACEPROMAZINE, ACEPROMETAZINE, CLORAZEPATE DIPOTASSIUM) [Suspect]
     Indication: ILL-DEFINED DISORDER
     Dosage: 0.5 DF (1 D), ORAL
     Route: 048
  4. PHENOBARBITAL TAB [Suspect]
     Indication: EPILEPSY
     Dosage: 100 MG (100 MG, 1 IN 1 D), ORAL
     Route: 048
  5. PRAXILENE (NAFTIDROFURYL OXALATE) [Concomitant]
  6. PAROXETINE HYDROCHLORIDE [Concomitant]
  7. CREON [Concomitant]
  8. OROCAL (CALCIUM CARBONATE) [Concomitant]
  9. INIPOMP (PANTOPRZOLE) [Concomitant]
  10. ACETAMINOPHEN [Concomitant]
  11. NITROGLYCERIN [Concomitant]
  12. ACTONEL (RISPERIDONE SODIUM) [Concomitant]
  13. TRIMEBUTINE MALEATE (TRIMEBUTINE MALEATE) [Concomitant]
  14. SPASFON (PHLOROGLUCINOL, TRIMETHYLPHLOROGLUCINOL) [Concomitant]
  15. MOVICOL (MACROGOL, POTASSIUM CHLORIDE, SODIUM BICARBONATE, SODIUM CHLO [Concomitant]
  16. LOVENOX [Concomitant]

REACTIONS (10)
  - BLOOD BICARBONATE INCREASED [None]
  - BODY TEMPERATURE INCREASED [None]
  - FOLATE DEFICIENCY [None]
  - GENERAL PHYSICAL CONDITION ABNORMAL [None]
  - HEADACHE [None]
  - HYPERCAPNIA [None]
  - HYPOVENTILATION [None]
  - HYPOXIA [None]
  - MACROCYTOSIS [None]
  - SOMNOLENCE [None]
